FAERS Safety Report 25299266 (Version 1)
Quarter: 2025Q2

REPORT INFORMATION
  Report Type: Spontaneous
  Country: US (occurrence: US)
  Receive Date: 20250512
  Receipt Date: 20250512
  Transmission Date: 20250716
  Serious: Yes (Other)
  Sender: BAXTER
  Company Number: US-BAXTER-2025BAX014645

PATIENT
  Age: 61 Year

DRUGS (2)
  1. NITROGLYCERIN [Suspect]
     Active Substance: NITROGLYCERIN
     Route: 042
     Dates: start: 20250309
  2. FENTANYL [Suspect]
     Active Substance: FENTANYL
     Route: 042
     Dates: start: 20250309

REACTIONS (5)
  - Hypertension [Unknown]
  - Blood pressure decreased [Unknown]
  - Drug ineffective [Unknown]
  - Device infusion issue [Unknown]
  - Device alarm issue [Unknown]

NARRATIVE: CASE EVENT DATE: 20250309
